FAERS Safety Report 18311504 (Version 1)
Quarter: 2020Q3

REPORT INFORMATION
  Report Type: Spontaneous
  Country: US (occurrence: US)
  Receive Date: 20200924
  Receipt Date: 20200924
  Transmission Date: 20201103
  Serious: Yes (Disabling)
  Sender: FDA-Public Use
  Company Number: None

PATIENT
  Age: 69 Year
  Sex: Female
  Weight: 96.3 kg

DRUGS (8)
  1. ALBUTEROL SULFATE HAD 90MCG INHALER [Suspect]
     Active Substance: ALBUTEROL SULFATE
     Indication: ASTHMA
     Dosage: ?          QUANTITY:1 SPRAY(S);?
     Route: 048
     Dates: start: 20200903, end: 20200924
  2. FLOUROCANE INHALER [Concomitant]
  3. ENBREL [Concomitant]
     Active Substance: ETANERCEPT
  4. VIT A [Concomitant]
  5. VITAMIN C [Concomitant]
     Active Substance: ASCORBIC ACID
  6. ALBUTEROL SULFATE HAD 90MCG INHALER [Suspect]
     Active Substance: ALBUTEROL SULFATE
     Indication: COUGH
     Dosage: ?          QUANTITY:1 SPRAY(S);?
     Route: 048
     Dates: start: 20200903, end: 20200924
  7. LOSARTIN HTZ [Concomitant]
  8. VIT D [Concomitant]
     Active Substance: VITAMIN D NOS

REACTIONS (4)
  - Incorrect dose administered by device [None]
  - Device occlusion [None]
  - Dyspnoea [None]
  - Device delivery system issue [None]

NARRATIVE: CASE EVENT DATE: 20200916
